FAERS Safety Report 14429008 (Version 1)
Quarter: 2018Q1

REPORT INFORMATION
  Report Type: Report from Study
  Country: US (occurrence: US)
  Receive Date: 20180123
  Receipt Date: 20180123
  Transmission Date: 20180509
  Serious: No
  Sender: FDA-Public Use
  Company Number: US-AMGEN-USASL2017158990

PATIENT
  Age: 80 Year
  Sex: Male

DRUGS (1)
  1. REPATHA [Suspect]
     Active Substance: EVOLOCUMAB
     Indication: HYPERCHOLESTEROLAEMIA
     Dosage: 420MG/3.5ML, QMO
     Route: 065
     Dates: start: 20171018

REACTIONS (13)
  - Poor quality sleep [Recovering/Resolving]
  - Injection site pain [Recovering/Resolving]
  - Rash [Not Recovered/Not Resolved]
  - Vision blurred [Recovering/Resolving]
  - Abdominal pain upper [Recovering/Resolving]
  - Ear discomfort [Recovering/Resolving]
  - Dizziness [Recovering/Resolving]
  - Head discomfort [Not Recovered/Not Resolved]
  - Stupor [Recovering/Resolving]
  - Gastrointestinal motility disorder [Not Recovered/Not Resolved]
  - Headache [Not Recovered/Not Resolved]
  - Pollakiuria [Not Recovered/Not Resolved]
  - Back pain [Recovering/Resolving]

NARRATIVE: CASE EVENT DATE: 2017
